FAERS Safety Report 4727026-2 (Version None)
Quarter: 2005Q3

REPORT INFORMATION
  Report Type: 
  Country: None (occurrence: None)
  Receive Date: 20050726
  Receipt Date: 20050719
  Transmission Date: 20060218
  Serious: Yes (Other)
  Sender: FDA-Public Use
  Company Number: 2005103658

PATIENT
  Age: 53 Year
  Sex: Female
  Weight: 69.8539 kg

DRUGS (2)
  1. PROCARDIA [Suspect]
     Indication: HYPERTENSION
     Dosage: 60 MG (60 MG, ONCE DAILY), ORAL
     Route: 048
     Dates: start: 20000101
  2. METOPROLOL TARTRATE [Concomitant]

REACTIONS (2)
  - HEPATIC FAILURE [None]
  - LIVER TRANSPLANT [None]
